FAERS Safety Report 4897462-2 (Version None)
Quarter: 2006Q1

REPORT INFORMATION
  Report Type: 
  Country: None (occurrence: None)
  Receive Date: 20060130
  Receipt Date: 20060130
  Transmission Date: 20060701
  Serious: Yes (Life-Threatening)
  Sender: FDA-Public Use
  Company Number: None

PATIENT
  Sex: Female
  Weight: 65.7716 kg

DRUGS (2)
  1. TRAMADOL/APAP 37.5/325MG  BY PHAR PHARM [Suspect]
     Indication: FIBROMYALGIA
     Dosage: 1 TABLET  TWICE DAY  ORAL/PILL
     Route: 048
     Dates: start: 20051228
  2. TRAMADOL/APAP 37.5/325MG  BY PHAR PHARM [Suspect]
     Indication: PAIN
     Dosage: 1 TABLET  TWICE DAY  ORAL/PILL
     Route: 048
     Dates: start: 20051228

REACTIONS (4)
  - DRUG DISPENSING ERROR [None]
  - HYPERSENSITIVITY [None]
  - PAIN [None]
  - THERAPEUTIC RESPONSE UNEXPECTED WITH DRUG SUBSTITUTION [None]
